FAERS Safety Report 25843900 (Version 2)
Quarter: 2025Q4

REPORT INFORMATION
  Report Type: Spontaneous
  Country: US (occurrence: US)
  Receive Date: 20250925
  Receipt Date: 20251001
  Transmission Date: 20260118
  Serious: No
  Sender: CSL BEHRING
  Company Number: US-BEH-2025219628

PATIENT
  Sex: Female

DRUGS (1)
  1. HIZENTRA [Suspect]
     Active Substance: HUMAN IMMUNOGLOBULIN G
     Dosage: 8 G, QW
     Route: 065

REACTIONS (1)
  - Headache [Not Recovered/Not Resolved]
